FAERS Safety Report 10380901 (Version 1)
Quarter: 2014Q3

REPORT INFORMATION
  Report Type: Spontaneous
  Country: US (occurrence: None)
  Receive Date: 20140808
  Receipt Date: 20140808
  Transmission Date: 20150326
  Serious: Yes (Other)
  Sender: FDA-Public Use
  Company Number: SYM-2014-23843

PATIENT
  Age: 75 Year
  Sex: Female

DRUGS (1)
  1. XENAZINE [Suspect]
     Active Substance: TETRABENAZINE
     Indication: CHOREA
     Dosage: 37.5MG 3 IN 1D, ORAL
     Route: 048
     Dates: start: 20140612

REACTIONS (5)
  - Insomnia [None]
  - Hallucination, auditory [None]
  - Hallucination, visual [None]
  - Somnolence [None]
  - Drug dose omission [None]

NARRATIVE: CASE EVENT DATE: 2014
